FAERS Safety Report 8138385-5 (Version None)
Quarter: 2012Q1

REPORT INFORMATION
  Report Type: 
  Country: None (occurrence: None)
  Receive Date: 20120215
  Receipt Date: 20120206
  Transmission Date: 20120608
  Serious: Yes (Hospitalization)
  Sender: FDA-Public Use
  Company Number: IT-SANOFI-AVENTIS-2012SA007642

PATIENT
  Age: 66 Year
  Sex: Female

DRUGS (3)
  1. OMEPRAZOLE [Concomitant]
  2. PLAVIX [Suspect]
     Route: 048
     Dates: start: 20110424, end: 20110525
  3. SERTRALINE HYDROCHLORIDE [Suspect]
     Dosage: POSOLOGICAL UNIT DOSE:1 UNIT(S)
     Route: 048
     Dates: start: 20110424, end: 20110525

REACTIONS (1)
  - CHEST PAIN [None]
